FAERS Safety Report 7611017-8 (Version None)
Quarter: 2011Q3

REPORT INFORMATION
  Report Type: 
  Country: None (occurrence: None)
  Receive Date: 20110715
  Receipt Date: 20110706
  Transmission Date: 20111222
  Serious: Yes (Hospitalization)
  Sender: FDA-Public Use
  Company Number: FR-JNJFOC-20110702183

PATIENT
  Age: 43 Year
  Sex: Male

DRUGS (2)
  1. INNOHEP [Concomitant]
     Indication: PRODUCT USED FOR UNKNOWN INDICATION
  2. REMICADE [Suspect]
     Indication: CROHN'S DISEASE
     Route: 042
     Dates: start: 20110508, end: 20110518

REACTIONS (6)
  - INFUSION RELATED REACTION [None]
  - URTICARIA [None]
  - DYSPNOEA [None]
  - ENTEROCUTANEOUS FISTULA [None]
  - CYANOSIS [None]
  - TONGUE OEDEMA [None]
